FAERS Safety Report 8047114-5 (Version None)
Quarter: 2012Q1

REPORT INFORMATION
  Report Type: 
  Country: None (occurrence: None)
  Receive Date: 20120116
  Receipt Date: 20120110
  Transmission Date: 20120608
  Serious: Yes (Other)
  Sender: FDA-Public Use
  Company Number: US-BRISTOL-MYERS SQUIBB COMPANY-16344483

PATIENT

DRUGS (2)
  1. IRINOTECAN HCL [Suspect]
  2. ERBITUX [Suspect]

REACTIONS (1)
  - BONE MARROW TOXICITY [None]
